FAERS Safety Report 22138662 (Version 1)
Quarter: 2023Q1

REPORT INFORMATION
  Report Type: Report from Study
  Country: US (occurrence: US)
  Receive Date: 20230326
  Receipt Date: 20230326
  Transmission Date: 20230417
  Serious: Yes (Death)
  Sender: FDA-Public Use
  Company Number: US-ABBVIE-4704048

PATIENT
  Sex: Female

DRUGS (4)
  1. VENCLEXTA [Suspect]
     Active Substance: VENETOCLAX
     Indication: Acute leukaemia
     Dosage: FORM STRENGTH 100 MILLIGRAM?DAY 2?TWO TABLETS BY MOUTH?DURATION WAS DAYS 1 TO 21 EVERY 28 DAYS
     Route: 048
  2. VENCLEXTA [Suspect]
     Active Substance: VENETOCLAX
     Indication: Acute leukaemia
     Dosage: TIME INTERVAL: 0.33333333 DAYS: DURATION WAS DAYS 1 TO 21 EVERY 28 DAYS
     Route: 048
  3. VENCLEXTA [Suspect]
     Active Substance: VENETOCLAX
     Indication: Acute leukaemia
     Dosage: DAY 1?ONE TABLET BY MOUTH?FORM STRENGTH 100 MILLIGRAM\?DURATION WAS DAYS 1 TO 21 EVERY 28 DAYS
     Route: 048
  4. VENCLEXTA [Suspect]
     Active Substance: VENETOCLAX
     Indication: Acute leukaemia
     Dosage: FORM STRENGTH 100 MILLIGRAM?FOUR TABLETS BY MOUTH DAILY THEREAFTER?DURATION WAS DAYS 1 TO 21 EVER...
     Route: 048

REACTIONS (1)
  - Death [Fatal]
